FAERS Safety Report 5689087-6 (Version None)
Quarter: 2008Q1

REPORT INFORMATION
  Report Type: 
  Country: None (occurrence: None)
  Receive Date: 20080331
  Receipt Date: 20070523
  Transmission Date: 20080703
  Serious: Yes (Death, Hospitalization)
  Sender: FDA-Public Use
  Company Number: CA-ROCHE-499257

PATIENT
  Age: 40 Year
  Sex: Female

DRUGS (2)
  1. FUZEON [Suspect]
     Dosage: DOSE FORM: VIAL.
     Route: 058
     Dates: start: 20040809, end: 20050401
  2. FUZEON [Suspect]
     Dosage: DOSE FORM: VIAL.
     Route: 058
     Dates: start: 20060901, end: 20070501

REACTIONS (1)
  - AIDS RELATED COMPLICATION [None]
